FAERS Safety Report 6296833-X (Version None)
Quarter: 2009Q3

REPORT INFORMATION
  Report Type: 
  Country: None (occurrence: None)
  Receive Date: 20090804
  Receipt Date: 20090728
  Transmission Date: 20100115
  Serious: Yes (Other)
  Sender: FDA-Public Use
  Company Number: PHHY2009CA31948

PATIENT
  Sex: Female

DRUGS (1)
  1. SANDOSTATIN LAR [Suspect]
     Indication: SMALL INTESTINAL RESECTION
     Dosage: 20 MG, QMO
     Route: 030
     Dates: start: 20080822

REACTIONS (2)
  - DEPRESSED MOOD [None]
  - INJECTION SITE PAIN [None]
